FAERS Safety Report 13939964 (Version 2)
Quarter: 2017Q4

REPORT INFORMATION
  Report Type: Report from Study
  Country: PL (occurrence: PL)
  Receive Date: 20170906
  Receipt Date: 20171006
  Transmission Date: 20180320
  Serious: Yes (Hospitalization)
  Sender: FDA-Public Use
  Company Number: PHHY2016PL135213

PATIENT
  Age: 71 Year
  Sex: Female

DRUGS (8)
  1. TRITACE [Concomitant]
     Active Substance: RAMIPRIL
     Indication: HYPERTENSION
     Dosage: UNK
     Route: 065
     Dates: start: 201706
  2. AMLOPIN [Concomitant]
     Active Substance: AMLODIPINE BESYLATE
     Indication: HYPERTENSION
     Dosage: 10 MG, UNK
     Route: 065
     Dates: start: 201706
  3. CARDURA [Suspect]
     Active Substance: DOXAZOSIN MESYLATE
     Indication: HYPERTENSION
     Route: 065
  4. TASIGNA [Suspect]
     Active Substance: NILOTINIB
     Indication: PRODUCT USED FOR UNKNOWN INDICATION
     Dosage: UNK
     Route: 065
     Dates: end: 20170824
  5. HYGROTON [Concomitant]
     Active Substance: CHLORTHALIDONE
     Indication: HYPERTENSION
     Dosage: HALF TAB EVERY 2 DAYS
     Route: 065
     Dates: start: 201706
  6. CAPTOPRIL. [Concomitant]
     Active Substance: CAPTOPRIL
     Indication: HYPERTENSION
     Dosage: UNK
     Route: 065
     Dates: start: 201706
  7. DIURESIN [Concomitant]
     Active Substance: INDAPAMIDE
     Indication: HYPERTENSION
     Dosage: UNK
     Route: 065
     Dates: start: 201706
  8. HYDROXYZINE [Concomitant]
     Active Substance: HYDROXYZINE HYDROCHLORIDE
     Indication: HYPERTENSION
     Dosage: UNK
     Route: 065
     Dates: start: 201706

REACTIONS (11)
  - Feeling abnormal [Unknown]
  - Eating disorder [Unknown]
  - Vomiting [Recovering/Resolving]
  - Gait disturbance [Unknown]
  - Hypertension [Unknown]
  - Alopecia [Unknown]
  - Asthenia [Not Recovered/Not Resolved]
  - Pain in extremity [Unknown]
  - Respiratory rate decreased [Recovered/Resolved]
  - Erythema [Unknown]
  - Pruritus [Unknown]

NARRATIVE: CASE EVENT DATE: 201707
